FAERS Safety Report 4508335-9 (Version None)
Quarter: 2004Q4

REPORT INFORMATION
  Report Type: 
  Country: None (occurrence: None)
  Receive Date: 20041123
  Receipt Date: 20040108
  Transmission Date: 20050328
  Serious: No
  Sender: FDA-Public Use
  Company Number: US-GLAXOSMITHKLINE-A0492013A

PATIENT
  Age: 21 Year
  Sex: Female
  Weight: 67.3 kg

DRUGS (2)
  1. WELLBUTRIN SR [Suspect]
     Indication: DEPRESSION
     Dosage: 150MG PER DAY
     Route: 048
     Dates: start: 20040101
  2. PROZAC [Concomitant]

REACTIONS (2)
  - FLATULENCE [None]
  - PHARMACEUTICAL PRODUCT COMPLAINT [None]
